FAERS Safety Report 9974326 (Version 1)
Quarter: 2014Q1

REPORT INFORMATION
  Report Type: Spontaneous
  Country: US (occurrence: US)
  Receive Date: 20140306
  Receipt Date: 20140306
  Transmission Date: 20141002
  Serious: No
  Sender: FDA-Public Use
  Company Number: US-ABBVIE-13P-163-1158798-00

PATIENT
  Age: 54 Year
  Sex: Female
  Weight: 50.85 kg

DRUGS (6)
  1. HUMIRA [Suspect]
     Indication: CROHN^S DISEASE
     Route: 058
     Dates: start: 201309, end: 201309
  2. HUMIRA [Suspect]
     Dosage: 2 WEEKS AFTER INITIAL DOSE
     Route: 058
     Dates: start: 201309, end: 201309
  3. HUMIRA [Suspect]
     Dosage: 4 WEEKS AFTER INITIAL DOSE
     Route: 058
     Dates: start: 201310
  4. LIALDA [Concomitant]
     Indication: CROHN^S DISEASE
  5. ELMIRON [Concomitant]
     Indication: CYSTITIS INTERSTITIAL
  6. VESICARE [Concomitant]
     Indication: CYSTITIS INTERSTITIAL

REACTIONS (1)
  - Injection site haemorrhage [Not Recovered/Not Resolved]
